FAERS Safety Report 20150923 (Version 1)
Quarter: 2021Q4

REPORT INFORMATION
  Report Type: Spontaneous
  Country: US (occurrence: None)
  Receive Date: 20211203
  Receipt Date: 20211203
  Transmission Date: 20220303
  Serious: No
  Sender: FDA-Public Use
  Company Number: None

PATIENT
  Sex: Female

DRUGS (1)
  1. HUMIRA [Suspect]
     Active Substance: ADALIMUMAB
     Indication: Crohn^s disease
     Dosage: WEEKLY?
     Route: 058
     Dates: start: 201611

REACTIONS (4)
  - Abdominal pain [None]
  - Abdominal symptom [None]
  - Gastrointestinal disorder [None]
  - Condition aggravated [None]
